FAERS Safety Report 20632444 (Version 2)
Quarter: 2022Q4

REPORT INFORMATION
  Report Type: Report from Study
  Country: US (occurrence: US)
  Receive Date: 20220324
  Receipt Date: 20221020
  Transmission Date: 20230113
  Serious: Yes (Disabling)
  Sender: FDA-Public Use
  Company Number: US-ABBVIE-22K-163-4328123-00

PATIENT
  Sex: Male

DRUGS (1)
  1. HUMIRA [Suspect]
     Active Substance: ADALIMUMAB
     Indication: Colitis ulcerative
     Dosage: 40MG/0.4ML CITRATE FREE
     Route: 058

REACTIONS (3)
  - Disability [Unknown]
  - Malaise [Unknown]
  - Food allergy [Unknown]
